FAERS Safety Report 5385432-X (Version None)
Quarter: 2007Q3

REPORT INFORMATION
  Report Type: 
  Country: None (occurrence: None)
  Receive Date: 20070709
  Receipt Date: 20070620
  Transmission Date: 20080115
  Serious: Yes (Other)
  Sender: FDA-Public Use
  Company Number: 2007JP002607

PATIENT
  Age: 2 Year
  Sex: Female

DRUGS (3)
  1. PROGRAF [Suspect]
     Indication: LIVER TRANSPLANT
  2. METHYLPREDNISOLONE [Concomitant]
  3. MYCOPHENOLATE MOFETIL [Concomitant]

REACTIONS (1)
  - HEPATIC FAILURE [None]
